FAERS Safety Report 5489363-6 (Version None)
Quarter: 2007Q4

REPORT INFORMATION
  Report Type: 
  Country: None (occurrence: None)
  Receive Date: 20071016
  Receipt Date: 20071016
  Transmission Date: 20080405
  Serious: Yes (Hospitalization)
  Sender: FDA-Public Use
  Company Number: None

PATIENT
  Sex: Male
  Weight: 89 kg

DRUGS (3)
  1. CARBOPLATIN [Suspect]
     Indication: NEOPLASM MALIGNANT
     Dosage: AUC 6 4WKS
     Dates: start: 20070925
  2. TAXOL [Suspect]
     Indication: NEOPLASM MALIGNANT
     Dosage: 100 MG/M2 IV QW
     Route: 042
     Dates: start: 20071009
  3. CETUXIMAB [Suspect]
     Indication: NEOPLASM MALIGNANT
     Dosage: 250MG/M2 IV QW
     Route: 042
     Dates: start: 20071009

REACTIONS (4)
  - ADVERSE DRUG REACTION [None]
  - CELLULITIS [None]
  - PSORIASIS [None]
  - SEBORRHOEA [None]
